FAERS Safety Report 24794738 (Version 2)
Quarter: 2025Q1

REPORT INFORMATION
  Report Type: Spontaneous
  Country: RO (occurrence: RO)
  Receive Date: 20241231
  Receipt Date: 20250120
  Transmission Date: 20250409
  Serious: Yes (Death, Life-Threatening, Other)
  Sender: MERCK
  Company Number: RO-009507513-2412ROU009967

PATIENT
  Age: 47 Year
  Sex: Male
  Weight: 55 kg

DRUGS (11)
  1. RECARBRIO [Suspect]
     Active Substance: CILASTATIN\IMIPENEM ANHYDROUS\RELEBACTAM ANHYDROUS
     Indication: Pseudomonas infection
     Dosage: STRENGTH: 500/500MG X250MG, 20ML X 25FLAC; DOSE: 100 MILLILITER, EVERY 6H
     Route: 042
     Dates: start: 20241219, end: 20241219
  2. MAGNESIUM SULFATE [Suspect]
     Active Substance: MAGNESIUM SULFATE
  3. AMPHOTERICIN B [Concomitant]
     Active Substance: AMPHOTERICIN B
     Indication: Rhinocerebral mucormycosis
     Dosage: DOSE: 50MG, 5 TIMES PER DAY; TOTAL DAILY DOSAGE: 250MG
     Route: 042
     Dates: start: 20241101, end: 20241219
  4. CRESEMBA [Concomitant]
     Active Substance: ISAVUCONAZONIUM SULFATE
     Indication: Rhinocerebral mucormycosis
     Dosage: 100 MILLIGRAM, BID; TOTAL DAILY DOSAGE: 200MG
     Route: 048
     Dates: start: 20241101, end: 20241219
  5. AVIBACTAM SODIUM\CEFTAZIDIME [Concomitant]
     Active Substance: AVIBACTAM SODIUM\CEFTAZIDIME
     Indication: Pseudomonas infection
     Dosage: 1 GR, BID; TOTAL DAILY DOSAGE: 2 GRAMS
     Route: 042
     Dates: start: 20241101, end: 20241219
  6. AVIBACTAM SODIUM\CEFTAZIDIME [Concomitant]
     Active Substance: AVIBACTAM SODIUM\CEFTAZIDIME
     Indication: Klebsiella infection
  7. AVIBACTAM SODIUM\CEFTAZIDIME [Concomitant]
     Active Substance: AVIBACTAM SODIUM\CEFTAZIDIME
     Indication: Enterococcal infection
  8. AZACTAM [Concomitant]
     Active Substance: AZTREONAM
     Indication: Pseudomonas infection
     Route: 042
     Dates: start: 20241101, end: 20241219
  9. AZACTAM [Concomitant]
     Active Substance: AZTREONAM
     Indication: Klebsiella infection
  10. AZACTAM [Concomitant]
     Active Substance: AZTREONAM
     Indication: Enterococcal infection
  11. LINEZOLID [Concomitant]
     Active Substance: LINEZOLID
     Indication: Enterococcal infection
     Dosage: 2 (UNIT NOT REPORTED)/DAILY; ROUTE OF ADMINISTRATION: INFUSION
     Route: 042

REACTIONS (12)
  - Generalised tonic-clonic seizure [Recovered/Resolved]
  - Respiratory failure [Recovered/Resolved]
  - Postictal state [Not Recovered/Not Resolved]
  - Death [Fatal]
  - Cardio-respiratory arrest [Recovered/Resolved]
  - Ruptured cerebral aneurysm [Unknown]
  - Infective aneurysm [Unknown]
  - Hypertension [Unknown]
  - Bladder dilatation [Unknown]
  - Oxygen saturation decreased [Recovered/Resolved]
  - Sinus tachycardia [Recovered/Resolved]
  - Hyporeflexia [Unknown]

NARRATIVE: CASE EVENT DATE: 20240101
